FAERS Safety Report 4947977-3 (Version None)
Quarter: 2006Q1

REPORT INFORMATION
  Report Type: 
  Country: None (occurrence: None)
  Receive Date: 20060320
  Receipt Date: 20050930
  Transmission Date: 20060701
  Serious: Yes (Hospitalization, Disabling, Other)
  Sender: FDA-Public Use
  Company Number: US-MERCK-0510USA01407

PATIENT
  Age: 52 Year
  Sex: Female
  Weight: 79 kg

DRUGS (2)
  1. VIOXX [Suspect]
     Indication: BACK PAIN
     Route: 048
     Dates: end: 20040301
  2. VIOXX [Suspect]
     Route: 048
     Dates: end: 20040301

REACTIONS (14)
  - ACUTE CORONARY SYNDROME [None]
  - ASTHMA [None]
  - BLINDNESS UNILATERAL [None]
  - CARDIAC DISORDER [None]
  - CEREBROVASCULAR ACCIDENT [None]
  - CHEST PAIN [None]
  - HEADACHE [None]
  - HEMIPARESIS [None]
  - HYPERLIPIDAEMIA [None]
  - HYPOAESTHESIA [None]
  - MUSCULOSKELETAL CHEST PAIN [None]
  - OSTEOARTHRITIS [None]
  - TRANSIENT ISCHAEMIC ATTACK [None]
  - VISION BLURRED [None]
